FAERS Safety Report 7901436-4 (Version None)
Quarter: 2011Q4

REPORT INFORMATION
  Report Type: 
  Country: None (occurrence: None)
  Receive Date: 20111108
  Receipt Date: 20111104
  Transmission Date: 20120403
  Serious: Yes (Life-Threatening, Hospitalization)
  Sender: FDA-Public Use
  Company Number: CA-B.I. PHARMACEUTICALS,INC./RIDGEFIELD-2011-CN-01652CN

PATIENT
  Age: 61 Year
  Sex: Male
  Weight: 97 kg

DRUGS (7)
  1. GLUMETZA [Concomitant]
     Indication: TYPE 2 DIABETES MELLITUS
     Dosage: 1000 MG
  2. CRESTOR [Concomitant]
     Indication: BLOOD CHOLESTEROL
     Dosage: 10 MG
  3. BISOPROLOL FUMARATE [Concomitant]
     Indication: HYPERTENSION
     Dosage: 40 MG
  4. PRADAXA [Suspect]
     Indication: ATRIAL FIBRILLATION
     Dosage: 300 MG
     Route: 048
     Dates: start: 20110801
  5. PANTOPRAZOLE SODIUM [Concomitant]
  6. ESCITALOPRAM [Concomitant]
     Indication: ANTIDEPRESSANT THERAPY
     Dosage: 20 MG
  7. PERINDOPRIL ERBUMINE [Concomitant]

REACTIONS (5)
  - FAT TISSUE INCREASED [None]
  - MYOCARDIAL INFARCTION [None]
  - TESTICULAR DISORDER [None]
  - DYSPNOEA [None]
  - LOSS OF CONSCIOUSNESS [None]
